FAERS Safety Report 18480063 (Version 1)
Quarter: 2020Q4

REPORT INFORMATION
  Report Type: Spontaneous
  Country: CN (occurrence: CN)
  Receive Date: 20201109
  Receipt Date: 20201109
  Transmission Date: 20210114
  Serious: Yes (Life-Threatening)
  Sender: FDA-Public Use
  Company Number: CN-FRESENIUS KABI-FK202011763

PATIENT
  Age: 54 Year
  Sex: Female

DRUGS (1)
  1. INTRALIPID [Suspect]
     Active Substance: EGG PHOSPHOLIPIDS\GLYCERIN\SOYBEAN OIL
     Indication: NUTRITIONAL SUPPLEMENTATION
     Dosage: 250ML QD
     Route: 041
     Dates: start: 20201012, end: 20201015

REACTIONS (1)
  - Chills [Recovering/Resolving]

NARRATIVE: CASE EVENT DATE: 20201015
